FAERS Safety Report 5964069-5 (Version None)
Quarter: 2008Q4

REPORT INFORMATION
  Report Type: 
  Country: None (occurrence: None)
  Receive Date: 20081124
  Receipt Date: 20081112
  Transmission Date: 20090506
  Serious: Yes (Other)
  Sender: FDA-Public Use
  Company Number: IN-ASTRAZENECA-2008AC02953

PATIENT
  Age: 26 Year
  Sex: Female
  Weight: 50 kg

DRUGS (2)
  1. LIDOCAINE [Suspect]
     Route: 042
  2. LIDOCAINE [Suspect]
     Dosage: INFILTRATION OVER THE TRACHEA

REACTIONS (2)
  - CONVULSION [None]
  - NEUROTOXICITY [None]
